FAERS Safety Report 9699906 (Version 2)
Quarter: 2013Q4

REPORT INFORMATION
  Report Type: Report from Study
  Country: DE (occurrence: DE)
  Receive Date: 20131121
  Receipt Date: 20131216
  Transmission Date: 20140711
  Serious: Yes (Hospitalization)
  Sender: FDA-Public Use
  Company Number: DE-AMGEN-DEUCT2013080867

PATIENT
  Age: 50 Year
  Sex: Male

DRUGS (3)
  1. PANITUMUMAB [Suspect]
     Indication: CHOLANGIOCARCINOMA
     Dosage: 9 MG/KG, UNK
     Route: 042
     Dates: start: 20130528
  2. GEMCITABINE [Concomitant]
     Dosage: 2900 MUG, UNK
     Route: 042
     Dates: start: 20130528
  3. CISPLATIN [Concomitant]
     Dosage: 50 MUG, UNK
     Route: 042
     Dates: start: 20130528

REACTIONS (3)
  - Gastroenteritis [Recovered/Resolved]
  - Diarrhoea [Recovered/Resolved]
  - Leukopenia [Recovered/Resolved]
